FAERS Safety Report 24171325 (Version 1)
Quarter: 2024Q3

REPORT INFORMATION
  Report Type: Spontaneous
  Country: US (occurrence: US)
  Receive Date: 20240805
  Receipt Date: 20240805
  Transmission Date: 20241016
  Serious: No
  Sender: RANBAXY
  Company Number: US-SUN PHARMACEUTICAL INDUSTRIES LTD-2024R1-442893

PATIENT
  Sex: Female

DRUGS (1)
  1. ODOMZO [Suspect]
     Active Substance: SONIDEGIB
     Indication: Skin cancer
     Dosage: 200 MILLIGRAM, QD
     Route: 048
     Dates: start: 20240320

REACTIONS (4)
  - Muscle spasms [Recovered/Resolved]
  - Pain [Recovered/Resolved]
  - Abdominal pain [Unknown]
  - Abdominal pain upper [Unknown]
